FAERS Safety Report 5894452-8 (Version None)
Quarter: 2008Q3

REPORT INFORMATION
  Report Type: 
  Country: None (occurrence: None)
  Receive Date: 20080923
  Receipt Date: 20080923
  Transmission Date: 20090109
  Serious: Yes (Hospitalization)
  Sender: FDA-Public Use
  Company Number: None

PATIENT
  Age: 42 Year
  Sex: Male
  Weight: 131.82 kg

DRUGS (1)
  1. CLOZAPINE [Suspect]
     Dosage: 25 MG AT BEDTIME PO
     Route: 048
     Dates: start: 20080603, end: 20080606

REACTIONS (1)
  - DYSPNOEA [None]
